FAERS Safety Report 15247749 (Version 2)
Quarter: 2018Q3

REPORT INFORMATION
  Report Type: Spontaneous
  Country: DE (occurrence: DE)
  Receive Date: 20180807
  Receipt Date: 20180912
  Transmission Date: 20181010
  Serious: Yes (Other)
  Sender: FDA-Public Use
  Company Number: DE-AUROBINDO-AUR-APL-2018-039394

PATIENT
  Age: 35 Year
  Sex: Female
  Weight: 54 kg

DRUGS (14)
  1. LAMOTRIGINE. [Suspect]
     Active Substance: LAMOTRIGINE
     Indication: EPILEPSY
     Dosage: 100 [MG/D ]/ 50 TO 100 MG/D ()
     Route: 048
     Dates: start: 20171209, end: 20180504
  2. CERGEM [Concomitant]
     Active Substance: GEMEPROST
     Dosage: SECOND TRIMESTER (20.4. ? 20.5 GESTATIONAL WEEK) ()
     Route: 065
  3. TORASEMID [Concomitant]
     Active Substance: TORSEMIDE
     Indication: HYPERTENSION
     Dosage: UNK
     Route: 048
  4. TORASEMID [Concomitant]
     Active Substance: TORSEMIDE
     Dosage: UNK (0 ? 5.2 GESTATIONAL WEEK) ()
     Route: 065
  5. DORZOLAMIDE [Concomitant]
     Active Substance: DORZOLAMIDE
     Dosage: UNK (18.1 ? 20.6 GESTATIONAL WEEK) ()
     Route: 065
  6. PANTOPRAZOLE [Suspect]
     Active Substance: PANTOPRAZOLE
     Indication: GASTRITIS PROPHYLAXIS
     Dosage: 40 MG/DL, QD (0. ? 13.5. GESTATIONAL WEEK)
     Route: 048
  7. NEPRESOL                           /00017902/ [Suspect]
     Active Substance: DIHYDRALAZINE SULFATE
     Dosage: 50 MG/DL, QD
     Route: 048
     Dates: start: 20180504
  8. CERGEM [Concomitant]
     Active Substance: GEMEPROST
     Indication: ABORTION INDUCED
     Dosage: UNK
     Route: 067
     Dates: start: 20180502, end: 20180503
  9. CANDESARTAN. [Suspect]
     Active Substance: CANDESARTAN
     Indication: HYPERTENSION
     Dosage: 32 [MG/DL ]
     Route: 048
  10. METOPROLOL SUCCINATE. [Suspect]
     Active Substance: METOPROLOL SUCCINATE
     Indication: HYPERTENSION
     Dosage: 190 [MG/D ]/ INITIA 2 X 95MG/D, THEN DOSAGE DECREASE TO 2 X 47.5MG/D ()
     Route: 048
     Dates: start: 20171209, end: 20180504
  11. NEPRESOL                           /00017902/ [Suspect]
     Active Substance: DIHYDRALAZINE SULFATE
     Indication: HYPERTENSION
     Dosage: 50 [MG/DL ]
     Route: 048
     Dates: start: 20171209, end: 20180504
  12. MIFEGYNE [Concomitant]
     Active Substance: MIFEPRISTONE
     Indication: ABORTION INDUCED
     Dosage: UNK
     Route: 048
     Dates: start: 20180502, end: 20180503
  13. MIFEGYNE [Concomitant]
     Active Substance: MIFEPRISTONE
     Dosage: UNK (20.4 ? 20.5 GESTATIONAL WEEK) ()
     Route: 065
  14. DORZOLAMIDE [Concomitant]
     Active Substance: DORZOLAMIDE
     Indication: GLAUCOMA
     Dosage: UNK
     Route: 047

REACTIONS (2)
  - Oligohydramnios [Recovered/Resolved]
  - Maternal exposure during pregnancy [Unknown]
